FAERS Safety Report 25088910 (Version 1)
Quarter: 2025Q1

REPORT INFORMATION
  Report Type: Spontaneous
  Country: US (occurrence: US)
  Receive Date: 20250318
  Receipt Date: 20250318
  Transmission Date: 20250408
  Serious: No
  Sender: MERCK SHARP & DOHME LLC
  Company Number: US-009507513-2265332

PATIENT
  Sex: Male

DRUGS (2)
  1. PEMBROLIZUMAB [Suspect]
     Active Substance: PEMBROLIZUMAB
  2. LENVATINIB [Suspect]
     Active Substance: LENVATINIB
     Indication: Renal cancer
     Dosage: 12 MG, QD; STRENGTH: 4 MG. LOT NUMBER: 4227589; EXPIRATION DATE: 31-MAR-2028
     Route: 048
     Dates: start: 20241226

REACTIONS (2)
  - Pruritus [Unknown]
  - Product use issue [Unknown]
